FAERS Safety Report 9019868 (Version 1)
Quarter: 2013Q1

REPORT INFORMATION
  Report Type: Spontaneous
  Country: SE (occurrence: SE)
  Receive Date: 20130118
  Receipt Date: 20130118
  Transmission Date: 20140127
  Serious: Yes (Hospitalization)
  Sender: FDA-Public Use
  Company Number: SE-009507513-1301SWE007296

PATIENT
  Age: 33 Year
  Sex: Male

DRUGS (3)
  1. TRYPTIZOL [Suspect]
     Route: 048
  2. ATARAX (HYDROXYZINE HYDROCHLORIDE) [Suspect]
  3. PROPAVAN [Suspect]

REACTIONS (1)
  - Toxicity to various agents [Unknown]
